FAERS Safety Report 8015776-4 (Version None)
Quarter: 2011Q4

REPORT INFORMATION
  Report Type: 
  Country: None (occurrence: None)
  Receive Date: 20111230
  Receipt Date: 20111221
  Transmission Date: 20120403
  Serious: Yes (Hospitalization)
  Sender: FDA-Public Use
  Company Number: FR-ROCHE-1024339

PATIENT
  Sex: Male

DRUGS (5)
  1. INDAPAMIDE [Concomitant]
     Route: 048
  2. PEGASYS [Suspect]
     Indication: MYELOFIBROSIS
     Route: 058
     Dates: start: 20110201
  3. ASPIRIN [Concomitant]
     Route: 048
  4. PEGASYS [Suspect]
     Route: 058
     Dates: start: 20110501
  5. PEGASYS [Suspect]
     Route: 058
     Dates: start: 20110801, end: 20111101

REACTIONS (1)
  - PORPHYRIA NON-ACUTE [None]
